FAERS Safety Report 7444327-8 (Version None)
Quarter: 2011Q2

REPORT INFORMATION
  Report Type: 
  Country: None (occurrence: None)
  Receive Date: 20110419
  Receipt Date: 20110404
  Transmission Date: 20111010
  Serious: Yes (Other)
  Sender: FDA-Public Use
  Company Number: AUR-APL-2011-00849

PATIENT
  Age: 60 Year
  Sex: Male
  Weight: 83.9 kg

DRUGS (7)
  1. LIPITOR [Suspect]
     Indication: BLOOD CHOLESTEROL ABNORMAL
     Dosage: 10MG-DAILY -
     Dates: start: 20100301, end: 20101001
  2. SIMVASTATIN [Suspect]
     Indication: BLOOD CHOLESTEROL ABNORMAL
     Dosage: 10MG-DAILY
     Dates: start: 20081020
  3. LISINOPRIL [Suspect]
     Indication: BLOOD PRESSURE ABNORMAL
     Dosage: 10MG-DAILY
     Dates: start: 20090901
  4. LIPITOR [Suspect]
     Indication: BLOOD CHOLESTEROL ABNORMAL
     Dosage: 10MG-DAILY -
     Dates: start: 20060101
  5. SIMVASTATIN [Suspect]
     Indication: BLOOD CHOLESTEROL ABNORMAL
     Dosage: 10MG-DAILY
     Dates: start: 20101101, end: 20100101
  6. ALTACE [Suspect]
     Indication: BLOOD PRESSURE ABNORMAL
     Dosage: 10MG-DAILY
     Dates: start: 20100101
  7. UNSPECIFIED DIURETIC [Concomitant]

REACTIONS (5)
  - MYALGIA [None]
  - DRUG INEFFECTIVE [None]
  - HAEMATOCHEZIA [None]
  - BLOOD URINE PRESENT [None]
  - THINKING ABNORMAL [None]
